FAERS Safety Report 8617768-0 (Version None)
Quarter: 2012Q3

REPORT INFORMATION
  Report Type: 
  Country: None (occurrence: None)
  Receive Date: 20120824
  Receipt Date: 20120223
  Transmission Date: 20120928
  Serious: No
  Sender: FDA-Public Use
  Company Number: US-ASTRAZENECA-2012SE13249

PATIENT
  Age: 39 Year
  Sex: Female
  Weight: 72.6 kg

DRUGS (1)
  1. SYMBICORT [Suspect]
     Route: 055

REACTIONS (5)
  - DRUG DOSE OMISSION [None]
  - COUGH [None]
  - DYSPNOEA [None]
  - WHEEZING [None]
  - CREPITATIONS [None]
